FAERS Safety Report 20651589 (Version 1)
Quarter: 2022Q1

REPORT INFORMATION
  Report Type: Spontaneous
  Country: US (occurrence: US)
  Receive Date: 20220330
  Receipt Date: 20220330
  Transmission Date: 20220423
  Serious: Yes (Death, Other)
  Sender: FDA-Public Use
  Company Number: US-BRISTOL-MYERS SQUIBB COMPANY-2022-010091

PATIENT
  Sex: Male
  Weight: 71.5 kg

DRUGS (3)
  1. OPDIVO [Suspect]
     Active Substance: NIVOLUMAB
     Indication: Product used for unknown indication
     Dosage: DOSE : 215 MG (NIVO) AND 72 (IPI);     FREQ : DAYS 1, 15 AND 29 (NIVO) ?EVERY 42 DAYS (IPI).
     Route: 042
  2. YERVOY [Suspect]
     Active Substance: IPILIMUMAB
     Indication: Product used for unknown indication
     Dosage: DOSE : 215 MG (NIVO) AND 72 (IPI); FREQ : DAYS 1, 15 AND 29 (NIVO) EVERY 42 DAYS (IPI)
     Route: 042
  3. NIVOLUMAB\RELATLIMAB-RMBW [Suspect]
     Active Substance: NIVOLUMAB\RELATLIMAB-RMBW
     Indication: Product used for unknown indication
     Dosage: DOSE : 215 MG (NIVO) AND 72 (IPI);     FREQ : DAYS 1, 15 AND 29 (NIVO) ?EVERY 42 DAYS (IPI).
     Route: 042

REACTIONS (2)
  - Death [Fatal]
  - Intentional product use issue [Unknown]
